FAERS Safety Report 5674371-2 (Version None)
Quarter: 2008Q2

REPORT INFORMATION
  Report Type: 
  Country: None (occurrence: None)
  Receive Date: 20080303
  Receipt Date: 20071119
  Transmission Date: 20081010
  Serious: Yes (Other)
  Sender: FDA-Public Use
  Company Number: 2007S1012044

PATIENT
  Sex: Male

DRUGS (1)
  1. AMNESTEEM [Suspect]

REACTIONS (1)
  - TRANSMISSION OF DRUG VIA SEMEN [None]
